FAERS Safety Report 14670254 (Version 1)
Quarter: 2018Q1

REPORT INFORMATION
  Report Type: Spontaneous
  Country: US (occurrence: US)
  Receive Date: 20180322
  Receipt Date: 20180322
  Transmission Date: 20180509
  Serious: No
  Sender: FDA-Public Use
  Company Number: PHEH2018US010917

PATIENT
  Sex: Female

DRUGS (5)
  1. DELAMANID [Suspect]
     Active Substance: DELAMANID
     Indication: EXPOSURE VIA PARTNER
     Dosage: FETAL DRUG EXPOSURE
     Route: 050
  2. LINEZOLID. [Suspect]
     Active Substance: LINEZOLID
     Indication: EXPOSURE VIA PARTNER
     Dosage: FETAL DRUG EXPOSURE
     Route: 050
  3. CLOFAZIMINE [Suspect]
     Active Substance: CLOFAZIMINE
     Indication: EXPOSURE VIA PARTNER
     Dosage: FETAL DRUG EXPOSURE
     Route: 050
  4. AMIKACIN [Suspect]
     Active Substance: AMIKACIN
     Indication: EXPOSURE VIA PARTNER
     Dosage: FETAL DRUG EXPOSURE
     Route: 050
  5. MOXIFLOXACIN. [Suspect]
     Active Substance: MOXIFLOXACIN
     Indication: EXPOSURE VIA PARTNER
     Dosage: FETAL DRUG EXPOSURE
     Route: 050

REACTIONS (1)
  - Exposure via partner [Unknown]
